FAERS Safety Report 5133217-1 (Version None)
Quarter: 2006Q4

REPORT INFORMATION
  Report Type: 
  Country: None (occurrence: None)
  Receive Date: 20061018
  Receipt Date: 20061005
  Transmission Date: 20070319
  Serious: Yes (Death)
  Sender: FDA-Public Use
  Company Number: RENA-11614

PATIENT
  Age: 57 Year
  Sex: Male
  Weight: 51 kg

DRUGS (5)
  1. RENAGEL [Suspect]
     Indication: HYPERPHOSPHATAEMIA
     Dosage: 1 G TID PO
     Route: 048
     Dates: start: 20040825, end: 20040920
  2. ADALAT [Concomitant]
  3. DIOVAN [Concomitant]
  4. METHYLDOPA [Concomitant]
  5. DEPAKENE [Concomitant]

REACTIONS (2)
  - DEHYDRATION [None]
  - DIARRHOEA [None]
